FAERS Safety Report 6836186-9 (Version None)
Quarter: 2010Q3

REPORT INFORMATION
  Report Type: 
  Country: None (occurrence: None)
  Receive Date: 20100713
  Receipt Date: 20100113
  Transmission Date: 20110219
  Serious: Yes (Hospitalization)
  Sender: FDA-Public Use
  Company Number: IT-ROCHE-714484

PATIENT
  Sex: Female

DRUGS (6)
  1. TORADOL [Suspect]
     Dosage: STRENGTH REPORTED AS 30 MG/ML
     Route: 030
     Dates: start: 20100107, end: 20100108
  2. EFFEXOR [Concomitant]
  3. ASPIRIN [Concomitant]
  4. NORVASC [Concomitant]
  5. LANSOPRAZOLE [Concomitant]
  6. NALAPRES [Concomitant]

REACTIONS (3)
  - ACUTE HEPATIC FAILURE [None]
  - DECREASED APPETITE [None]
  - HYPOTENSION [None]
